FAERS Safety Report 24616962 (Version 1)
Quarter: 2024Q4

REPORT INFORMATION
  Report Type: Spontaneous
  Country: PL (occurrence: PL)
  Receive Date: 20241114
  Receipt Date: 20241114
  Transmission Date: 20250114
  Serious: Yes (Other)
  Sender: BAUSCH AND LOMB
  Company Number: PL-JNJFOC-20241101027

PATIENT
  Sex: Male

DRUGS (5)
  1. DEXAMETHASONE [Suspect]
     Active Substance: DEXAMETHASONE
     Indication: Plasma cell myeloma
     Route: 065
  2. DARZALEX [Suspect]
     Active Substance: DARATUMUMAB
     Indication: Plasma cell myeloma
     Route: 058
  3. DARZALEX [Suspect]
     Active Substance: DARATUMUMAB
     Route: 058
  4. DARZALEX [Suspect]
     Active Substance: DARATUMUMAB
     Dosage: WEEK 25 OF TREATMENT.
     Route: 058
  5. REVLIMID [Suspect]
     Active Substance: LENALIDOMIDE
     Indication: Plasma cell myeloma
     Route: 048

REACTIONS (3)
  - Neutropenia [Unknown]
  - Catarrh [Unknown]
  - Intentional product use issue [Unknown]
